FAERS Safety Report 4879470-0 (Version None)
Quarter: 2005Q4

REPORT INFORMATION
  Report Type: 
  Country: None (occurrence: None)
  Receive Date: 20051209
  Receipt Date: 20050930
  Transmission Date: 20060501
  Serious: Yes (Death)
  Sender: FDA-Public Use
  Company Number: USA-2005-0021382

PATIENT
  Age: 40 Year
  Sex: Male
  Weight: 81.6 kg

DRUGS (6)
  1. OXYCODONE HCL [Suspect]
     Route: 065
  2. PROPOXYPHENE (DEXTROPROPOXYPHENE) [Suspect]
     Route: 065
  3. SERTRALINE [Suspect]
     Route: 065
  4. ALPRAZOLAM [Suspect]
     Route: 065
  5. BUTALBITAL [Suspect]
     Route: 065
  6. HYDROCODONE BITARTRATE [Suspect]
     Route: 065

REACTIONS (1)
  - MULTIPLE DRUG OVERDOSE INTENTIONAL [None]
